FAERS Safety Report 5045612-X (Version None)
Quarter: 2006Q3

REPORT INFORMATION
  Report Type: 
  Country: None (occurrence: None)
  Receive Date: 20060707
  Receipt Date: 20060630
  Transmission Date: 20061208
  Serious: Yes (Hospitalization)
  Sender: FDA-Public Use
  Company Number: BR-ROCHE-453892

PATIENT
  Age: 88 Year
  Sex: Female
  Weight: 52 kg

DRUGS (3)
  1. BONIVA [Suspect]
     Indication: OSTEOPOROSIS
     Route: 048
     Dates: start: 20060515, end: 20060515
  2. ENALAPRIL [Concomitant]
     Route: 048
  3. INDAPAMIDE [Concomitant]
     Route: 048

REACTIONS (5)
  - BACK PAIN [None]
  - BLOOD PRESSURE INCREASED [None]
  - CHEST PAIN [None]
  - DYSPNOEA [None]
  - MOVEMENT DISORDER [None]
